FAERS Safety Report 17879725 (Version 3)
Quarter: 2020Q3

REPORT INFORMATION
  Report Type: Report from Study
  Country: None (occurrence: US)
  Receive Date: 20200610
  Receipt Date: 20200710
  Transmission Date: 20201103
  Serious: Yes (Other)
  Sender: FDA-Public Use
  Company Number: US-ABBVIE-20K-163-3434736-00

PATIENT
  Sex: Male

DRUGS (2)
  1. HUMIRA [Suspect]
     Active Substance: ADALIMUMAB
     Indication: PSORIASIS
     Route: 058
  2. HUMIRA [Suspect]
     Active Substance: ADALIMUMAB
     Route: 058

REACTIONS (9)
  - Therapeutic product effect decreased [Unknown]
  - Haematoma [Unknown]
  - Psoriasis [Unknown]
  - Spinal fusion surgery [Unknown]
  - Mobility decreased [Unknown]
  - Continuous positive airway pressure [Unknown]
  - Atrial fibrillation [Unknown]
  - Malaise [Unknown]
  - Pain [Unknown]
